FAERS Safety Report 6864643-8 (Version None)
Quarter: 2010Q3

REPORT INFORMATION
  Report Type: 
  Country: None (occurrence: None)
  Receive Date: 20100721
  Receipt Date: 20080508
  Transmission Date: 20110219
  Serious: No
  Sender: FDA-Public Use
  Company Number: US-PFIZER INC-2008027146

PATIENT
  Sex: Female
  Weight: 54.9 kg

DRUGS (6)
  1. CHANTIX [Suspect]
     Indication: SMOKING CESSATION THERAPY
     Route: 048
     Dates: start: 20080319
  2. TOPROL-XL [Concomitant]
  3. TIAZAC [Concomitant]
  4. ACCUPRIL [Concomitant]
  5. ACETYLSALICYLIC ACID [Concomitant]
  6. PREMARIN [Concomitant]

REACTIONS (2)
  - NAUSEA [None]
  - OROPHARYNGEAL PAIN [None]
